FAERS Safety Report 5032592-6 (Version None)
Quarter: 2006Q2

REPORT INFORMATION
  Report Type: 
  Country: None (occurrence: None)
  Receive Date: 20060622
  Receipt Date: 20060615
  Transmission Date: 20061013
  Serious: Yes (Hospitalization, Other)
  Sender: FDA-Public Use
  Company Number: SI-BRISTOL-MYERS SQUIBB COMPANY-13417803

PATIENT
  Age: 67 Year
  Sex: Male
  Weight: 101 kg

DRUGS (7)
  1. APROVEL TABS 300 MG [Suspect]
     Indication: HYPERTENSION
     Dosage: REDUCED TO 150 MG DAILY IN MAR-2006
     Route: 048
     Dates: start: 20060224, end: 20060509
  2. APROVEL TABS 300 MG [Suspect]
     Indication: DIABETIC NEPHROPATHY
     Dosage: REDUCED TO 150 MG DAILY IN MAR-2006
     Route: 048
     Dates: start: 20060224, end: 20060509
  3. GLIBENKLAMID [Concomitant]
     Indication: DIABETES MELLITUS
     Dosage: LOWERED DOSE FROM 2-2 TO 2-0-1 PER DAY
     Route: 048
  4. AGLURAB [Concomitant]
     Indication: DIABETES MELLITUS
     Route: 048
  5. TERTENSIF [Concomitant]
     Indication: HYPERTENSION
     Route: 048
  6. VASILIP [Concomitant]
     Indication: DYSLIPIDAEMIA
     Route: 048
  7. OLFEN [Concomitant]
     Route: 048

REACTIONS (6)
  - FEELING ABNORMAL [None]
  - HYPERHIDROSIS [None]
  - HYPOGLYCAEMIA [None]
  - METASTASES TO LIVER [None]
  - RECTOSIGMOID CANCER [None]
  - VERTIGO [None]
